FAERS Safety Report 20177253 (Version 1)
Quarter: 2021Q4

REPORT INFORMATION
  Report Type: Report from Study
  Country: US (occurrence: US)
  Receive Date: 20211213
  Receipt Date: 20211213
  Transmission Date: 20220303
  Serious: No
  Sender: FDA-Public Use
  Company Number: US-NOVARTISTESTPH-NVSC2021US277497

PATIENT
  Sex: Female

DRUGS (1)
  1. COSENTYX [Suspect]
     Active Substance: SECUKINUMAB
     Indication: Psoriatic arthropathy
     Dosage: 300 MG, QW (WEEKLY FOR 5 WEEKS, THEN ONCE EVERY 4 WEEKS) (BENEATH THE SKIN, USUALLY VIA INJECTION)
     Route: 058

REACTIONS (9)
  - Skin infection [Unknown]
  - Infection [Unknown]
  - Injection site mass [Unknown]
  - Injection site pain [Unknown]
  - Herpes zoster [Unknown]
  - Arthritis [Unknown]
  - Weight bearing difficulty [Unknown]
  - Arthralgia [Unknown]
  - Joint swelling [Unknown]
